FAERS Safety Report 14739490 (Version 1)
Quarter: 2018Q2

REPORT INFORMATION
  Report Type: Spontaneous
  Country: FR (occurrence: FR)
  Receive Date: 20180410
  Receipt Date: 20180410
  Transmission Date: 20180711
  Serious: Yes (Other)
  Sender: FDA-Public Use
  Company Number: FR-SUN PHARMACEUTICAL INDUSTRIES LTD-2018RR-169588

PATIENT
  Age: 18 Year
  Sex: Male

DRUGS (2)
  1. TRAMADOL ZENTIVA LP 100 MG [Suspect]
     Active Substance: TRAMADOL
     Indication: PRODUCT USED FOR UNKNOWN INDICATION
     Dosage: 1 DF, 1/DAY
     Route: 048
     Dates: end: 20180207
  2. TRAMADOL. [Suspect]
     Active Substance: TRAMADOL
     Indication: PRODUCT USED FOR UNKNOWN INDICATION
     Dosage: UNK ()
     Route: 065

REACTIONS (7)
  - Aggression [Recovered/Resolved]
  - Agitation [Recovered/Resolved]
  - Arthralgia [Recovered/Resolved]
  - Withdrawal syndrome [Recovered/Resolved]
  - Nightmare [Recovered/Resolved]
  - Restless legs syndrome [Recovered/Resolved]
  - Malaise [Recovered/Resolved]

NARRATIVE: CASE EVENT DATE: 201802
